FAERS Safety Report 20747452 (Version 1)
Quarter: 2022Q2

REPORT INFORMATION
  Report Type: Spontaneous
  Country: US (occurrence: US)
  Receive Date: 20220425
  Receipt Date: 20220425
  Transmission Date: 20220721
  Serious: No
  Sender: FDA-Public Use
  Company Number: US-SANOFI-01067051

PATIENT
  Age: 71 Year
  Sex: Male

DRUGS (2)
  1. JEVTANA [Suspect]
     Active Substance: CABAZITAXEL
     Dosage: UNK, Q3W
  2. JEVTANA [Suspect]
     Active Substance: CABAZITAXEL
     Dosage: UNK, QW

REACTIONS (1)
  - Off label use [Unknown]
